FAERS Safety Report 10070416 (Version 2)
Quarter: 2014Q2

REPORT INFORMATION
  Report Type: Spontaneous
  Country: MX (occurrence: MX)
  Receive Date: 20140410
  Receipt Date: 20140428
  Transmission Date: 20141212
  Serious: Yes (Other)
  Sender: FDA-Public Use
  Company Number: MX-NOVOPROD-405266

PATIENT
  Age: 53 Year
  Sex: Female
  Weight: 73 kg

DRUGS (5)
  1. VICTOZA [Suspect]
     Indication: TYPE 2 DIABETES MELLITUS
     Dosage: 1.8 MG, QD
     Route: 058
     Dates: start: 20121107, end: 20131230
  2. NOVOMIX 30 FLEXPEN [Suspect]
     Indication: TYPE 2 DIABETES MELLITUS
     Dosage: 176 IU, QD (98 IU AT MORNING, 78 IU AT NIGHT)
     Route: 058
     Dates: start: 20130515
  3. NOVOMIX 30 FLEXPEN [Suspect]
     Dosage: DOSE INCREASED
     Route: 058
  4. AKSPRI [Concomitant]
     Dosage: 1000 MG, BID
     Route: 048
     Dates: start: 20121107
  5. FORXIGA [Concomitant]
     Dosage: 10 MG, QD
     Route: 048
     Dates: start: 20130903

REACTIONS (1)
  - Adenocarcinoma pancreas [Recovered/Resolved]
